FAERS Safety Report 21621346 (Version 1)
Quarter: 2022Q4

REPORT INFORMATION
  Report Type: Spontaneous
  Country: US (occurrence: US)
  Receive Date: 20221121
  Receipt Date: 20221121
  Transmission Date: 20230113
  Serious: No
  Sender: FDA-Public Use
  Company Number: US-BRISTOL-MYERS SQUIBB COMPANY-2022-139753

PATIENT
  Age: 81 Year
  Sex: Male
  Weight: 83.91 kg

DRUGS (1)
  1. REVLIMID [Suspect]
     Active Substance: LENALIDOMIDE
     Indication: Refractory cytopenia with unilineage dysplasia
     Dosage: ONCE DAILY
     Route: 048

REACTIONS (2)
  - Haemoglobin decreased [Unknown]
  - Off label use [Unknown]
